FAERS Safety Report 15412228 (Version 2)
Quarter: 2018Q4

REPORT INFORMATION
  Report Type: Spontaneous
  Country: DE (occurrence: DE)
  Receive Date: 20180921
  Receipt Date: 20181001
  Transmission Date: 20190204
  Serious: Yes (Other)
  Sender: FDA-Public Use
  Company Number: DE-ASTELLAS-2018US041152

PATIENT
  Sex: Male

DRUGS (6)
  1. MICARDIS [Concomitant]
     Active Substance: TELMISARTAN
     Indication: HYPERTENSION
     Dosage: 1 DF, ONCE DAILY (STARTED MORE THAN 2 YEARS AGO)
     Route: 048
  2. EZETROL [Concomitant]
     Active Substance: EZETIMIBE
     Indication: HYPERCHOLESTEROLAEMIA
     Dosage: 1 DF, ONCE DAILY (STARTED MORE THAN 1 YEARS AGO
     Route: 048
  3. FLUVASTATIN [Concomitant]
     Active Substance: FLUVASTATIN SODIUM
     Indication: HYPERCHOLESTEROLAEMIA
     Dosage: 1 DF, ONCE DAILY (STARTED 6 MONTHS AGO)
     Route: 048
     Dates: start: 2018
  4. BETMIGA [Suspect]
     Active Substance: MIRABEGRON
     Indication: HYPERTONIC BLADDER
     Route: 048
     Dates: start: 20180515, end: 20180909
  5. BISOPROLOL [Concomitant]
     Active Substance: BISOPROLOL
     Indication: HYPERTENSION
     Dosage: 0.5 DF, ONCE DAILY (STARTED MORE THAN 2 YEARS AGO)
     Route: 048
  6. BETMIGA [Suspect]
     Active Substance: MIRABEGRON
     Indication: HYPERTONIC BLADDER
     Route: 048
     Dates: start: 20180910

REACTIONS (3)
  - Muscular weakness [Unknown]
  - Supraventricular extrasystoles [Not Recovered/Not Resolved]
  - Sleep disorder [Unknown]

NARRATIVE: CASE EVENT DATE: 20180910
